FAERS Safety Report 8974302 (Version 3)
Quarter: 2013Q1

REPORT INFORMATION
  Report Type: Spontaneous
  Country: US (occurrence: US)
  Receive Date: 20121220
  Receipt Date: 20130201
  Transmission Date: 20140127
  Serious: No
  Sender: FDA-Public Use
  Company Number: US-PFIZER INC-2012320574

PATIENT
  Age: 59 Year
  Sex: Male

DRUGS (3)
  1. ALTACE [Suspect]
     Indication: HYPERTENSION
     Dosage: 5 MG,ONCE DAILY
     Route: 048
     Dates: start: 20121206, end: 20121217
  2. PROAIR [Concomitant]
     Dosage: UNK
  3. FLOVENT [Concomitant]
     Dosage: UNK

REACTIONS (2)
  - Hiccups [Unknown]
  - Herpes zoster [Unknown]
